FAERS Safety Report 24696037 (Version 1)
Quarter: 2024Q4

REPORT INFORMATION
  Report Type: Spontaneous
  Country: IT (occurrence: IT)
  Receive Date: 20241204
  Receipt Date: 20241204
  Transmission Date: 20250115
  Serious: Yes (Life-Threatening, Hospitalization, Other)
  Sender: MYLAN
  Company Number: None

PATIENT
  Age: 61 Year
  Sex: Male

DRUGS (1)
  1. XANAX [Suspect]
     Active Substance: ALPRAZOLAM
     Indication: Product used for unknown indication
     Dosage: 10 MILLIGRAM, TOTAL (20 TABLETS OF XANAX 0.50 MG (10 MG TOTAL), TAKES THE ENTIRE BOX)
     Route: 048
     Dates: start: 20241110, end: 20241110

REACTIONS (3)
  - Sedation [Recovered/Resolved]
  - Intentional self-injury [Unknown]
  - Drug abuse [Not Recovered/Not Resolved]

NARRATIVE: CASE EVENT DATE: 20241110
